FAERS Safety Report 11972884 (Version 1)
Quarter: 2016Q1

REPORT INFORMATION
  Report Type: Spontaneous
  Country: GB (occurrence: GB)
  Receive Date: 20160128
  Receipt Date: 20160128
  Transmission Date: 20160526
  Serious: Yes (Other)
  Sender: FDA-Public Use
  Company Number: GB-MALLINCKRODT-T201600264

PATIENT
  Age: 73 Year
  Sex: Female

DRUGS (1)
  1. OPTIRAY [Suspect]
     Active Substance: IOVERSOL
     Indication: X-RAY WITH CONTRAST
     Dosage: 120 ML, UNK
     Route: 042
     Dates: start: 20160114, end: 20160114

REACTIONS (4)
  - Sneezing [Unknown]
  - Contrast media reaction [Recovering/Resolving]
  - Cough [Unknown]
  - Hyperhidrosis [Unknown]

NARRATIVE: CASE EVENT DATE: 20160114
